FAERS Safety Report 5724514-7 (Version None)
Quarter: 2008Q2

REPORT INFORMATION
  Report Type: 
  Country: None (occurrence: None)
  Receive Date: 20080501
  Receipt Date: 20080423
  Transmission Date: 20081010
  Serious: Yes (Death)
  Sender: FDA-Public Use
  Company Number: ES-RANBAXY-2008RR-14419

PATIENT

DRUGS (2)
  1. LEVOFLOXACIN [Suspect]
     Indication: PNEUMONIA
     Dosage: 500 MG, QD
     Route: 042
  2. AMOXICILLIN [Concomitant]
     Indication: PNEUMONIA
     Dosage: 1 G, TID
     Route: 042

REACTIONS (1)
  - TREATMENT FAILURE [None]
